FAERS Safety Report 13710483 (Version 1)
Quarter: 2017Q3

REPORT INFORMATION
  Report Type: Spontaneous
  Country: FR (occurrence: FR)
  Receive Date: 20170703
  Receipt Date: 20170703
  Transmission Date: 20171127
  Serious: Yes (Hospitalization)
  Sender: FDA-Public Use
  Company Number: FR-AUROBINDO-AUR-APL-2017-36113

PATIENT
  Age: 58 Year
  Sex: Male

DRUGS (6)
  1. METHYLPREDNISOLONE MYLAN           /00049602/ [Suspect]
     Active Substance: METHYLPREDNISOLONE SODIUM SUCCINATE
     Indication: TOXOCARIASIS
     Dosage: 2 G, ONCE A DAY
     Route: 042
     Dates: start: 20170420, end: 20170420
  2. PREDNISONE ARROW [Suspect]
     Active Substance: PREDNISONE
     Dosage: 120 MG, ONCE A DAY
     Route: 048
     Dates: start: 20170525, end: 20170528
  3. PREDNISONE ARROW [Suspect]
     Active Substance: PREDNISONE
     Indication: TOXOCARIASIS
     Dosage: 120 MG, ONCE A DAY
     Route: 048
     Dates: start: 20170506, end: 20170506
  4. METHYLPREDNISOLONE MYLAN           /00049602/ [Suspect]
     Active Substance: METHYLPREDNISOLONE SODIUM SUCCINATE
     Dosage: 120 MG, ONCE A DAY
     Route: 042
     Dates: start: 20170506, end: 20170523
  5. PREDNISONE ARROW [Suspect]
     Active Substance: PREDNISONE
     Dosage: 60 MG, ONCE A DAY
     Route: 048
     Dates: start: 20170529
  6. METHYLPREDNISOLONE MYLAN           /00049602/ [Suspect]
     Active Substance: METHYLPREDNISOLONE SODIUM SUCCINATE
     Dosage: 1 G, ONCE A DAY
     Route: 042
     Dates: start: 20170421, end: 20170428

REACTIONS (1)
  - Hyperleukocytosis [Not Recovered/Not Resolved]

NARRATIVE: CASE EVENT DATE: 20170421
